FAERS Safety Report 5875682-8 (Version None)
Quarter: 2008Q3

REPORT INFORMATION
  Report Type: 
  Country: None (occurrence: None)
  Receive Date: 20080904
  Receipt Date: 20080822
  Transmission Date: 20090109
  Serious: Yes (Hospitalization)
  Sender: FDA-Public Use
  Company Number: M-08-0844

PATIENT
  Age: 73 Year
  Sex: Female

DRUGS (4)
  1. KLOR-CON [Suspect]
     Indication: MINERAL SUPPLEMENTATION
     Dosage: 10 MEQ, BID, PO
     Route: 048
  2. HYDROCHLOROTHIAZIDE [Suspect]
     Indication: BLOOD PRESSURE INCREASED
     Dosage: PO
     Route: 048
  3. ATACAND (START-UNK, CONTIN) [Concomitant]
  4. PROTONIX (START-UNK, CONTIN.) [Concomitant]

REACTIONS (3)
  - BLOOD POTASSIUM DECREASED [None]
  - DIZZINESS [None]
  - FATIGUE [None]
